FAERS Safety Report 25005691 (Version 2)
Quarter: 2025Q2

REPORT INFORMATION
  Report Type: Spontaneous
  Country: JP (occurrence: JP)
  Receive Date: 20250224
  Receipt Date: 20250422
  Transmission Date: 20250716
  Serious: No
  Sender: AMGEN
  Company Number: JP-AMGEN-JPNSP2025034210

PATIENT
  Age: 54 Year
  Sex: Female

DRUGS (13)
  1. EVENITY [Suspect]
     Active Substance: ROMOSOZUMAB-AQQG
     Indication: Osteoporosis
     Dosage: 210 MILLIGRAM, QMO
     Route: 058
     Dates: start: 20230728, end: 20240628
  2. ELDECALCITOL [Concomitant]
     Active Substance: ELDECALCITOL
     Dates: start: 20230728
  3. FERROUS CITRATE [Concomitant]
     Active Substance: FERROUS CITRATE
     Dates: start: 20230704, end: 20230912
  4. TRAMADOL [Concomitant]
     Active Substance: TRAMADOL
     Dates: start: 20230728
  5. SENNOSIDES [Concomitant]
     Active Substance: SENNOSIDES
     Dates: start: 20230728
  6. CELECOXIB [Concomitant]
     Active Substance: CELECOXIB
     Dates: start: 20230728
  7. PREGABALIN [Concomitant]
     Active Substance: PREGABALIN
     Dates: start: 20230728, end: 20240531
  8. REBAMIPIDE [Concomitant]
     Active Substance: REBAMIPIDE
     Dates: start: 20230728
  9. CYMBALTA [Concomitant]
     Active Substance: DULOXETINE HYDROCHLORIDE
     Dates: start: 20231006, end: 20231020
  10. METHOTREXATE [Concomitant]
     Active Substance: METHOTREXATE
  11. PREDONINE [Concomitant]
     Active Substance: PREDNISOLONE
  12. GLUTAMINE\SODIUM GUALENATE [Concomitant]
     Active Substance: GLUTAMINE\SODIUM GUALENATE
  13. FOLIC ACID [Concomitant]
     Active Substance: FOLIC ACID

REACTIONS (1)
  - Chest pain [Recovered/Resolved]

NARRATIVE: CASE EVENT DATE: 20240301
